FAERS Safety Report 9024323 (Version 2)
Quarter: 2013Q1

REPORT INFORMATION
  Report Type: Spontaneous
  Country: JP (occurrence: JP)
  Receive Date: 20130121
  Receipt Date: 20130304
  Transmission Date: 20140127
  Serious: Yes (Other)
  Sender: FDA-Public Use
  Company Number: PHHY2013JP004794

PATIENT
  Sex: Male

DRUGS (4)
  1. EXFORGE [Suspect]
     Indication: HYPERTENSION
     Route: 048
  2. RIFADIN [Concomitant]
     Route: 048
  3. ISCOTIN [Concomitant]
     Route: 048
  4. EBUTOL [Concomitant]
     Route: 048

REACTIONS (2)
  - Hyperuricaemia [Unknown]
  - Condition aggravated [Unknown]
